FAERS Safety Report 24759521 (Version 1)
Quarter: 2024Q4

REPORT INFORMATION
  Report Type: Spontaneous
  Country: CN (occurrence: CN)
  Receive Date: 20241220
  Receipt Date: 20241220
  Transmission Date: 20250115
  Serious: Yes (Hospitalization)
  Sender: AMGEN
  Company Number: CN-AMGEN-CHNSP2024249278

PATIENT
  Age: 54 Year
  Sex: Male
  Weight: 48 kg

DRUGS (2)
  1. XGEVA [Suspect]
     Active Substance: DENOSUMAB
     Indication: Renal cancer
     Dosage: 120 MILLIGRAM
     Route: 058
     Dates: start: 20241029, end: 20241029
  2. AXITINIB [Suspect]
     Active Substance: AXITINIB
     Indication: Renal cancer
     Dosage: 5 MILLIGRAM
     Route: 048
     Dates: start: 20241029, end: 20241202

REACTIONS (1)
  - Haemoglobin decreased [Unknown]

NARRATIVE: CASE EVENT DATE: 20241202
